FAERS Safety Report 5364967-X (Version None)
Quarter: 2007Q2

REPORT INFORMATION
  Report Type: 
  Country: None (occurrence: None)
  Receive Date: 20070621
  Receipt Date: 20070611
  Transmission Date: 20071010
  Serious: Yes (Hospitalization)
  Sender: FDA-Public Use
  Company Number: US-JNJFOC-20070602479

PATIENT
  Age: 89 Year
  Sex: Female
  Weight: 55.1 kg

DRUGS (20)
  1. DOXORUBICIN HCL [Suspect]
     Route: 042
  2. DOXORUBICIN HCL [Suspect]
     Indication: DIFFUSE LARGE B-CELL LYMPHOMA
     Route: 042
  3. RITUXIMAB [Suspect]
     Indication: DRUG USE FOR UNKNOWN INDICATION
     Route: 042
  4. CYCLOPHOSPHAMIDE [Suspect]
     Indication: DRUG USE FOR UNKNOWN INDICATION
     Route: 042
  5. VINCRISTINE SULFATE [Suspect]
     Indication: DRUG USE FOR UNKNOWN INDICATION
     Route: 042
  6. PREDNISONE TAB [Suspect]
     Indication: DRUG USE FOR UNKNOWN INDICATION
     Route: 065
  7. NEULASTA [Suspect]
     Indication: DRUG USE FOR UNKNOWN INDICATION
     Route: 058
  8. CENTRUM [Concomitant]
     Route: 065
  9. COREG [Concomitant]
     Route: 065
  10. DARVON [Concomitant]
     Route: 065
  11. GLIPIZIDE [Concomitant]
     Route: 065
  12. LIPITOR [Concomitant]
     Route: 065
  13. MAGNESIUM SULFATE [Concomitant]
     Route: 065
  14. NEXIUM [Concomitant]
     Route: 065
  15. PHENERGAN HCL [Concomitant]
     Route: 065
  16. PREDNISONE TAB [Concomitant]
     Route: 065
  17. SYNTHROID [Concomitant]
     Route: 065
  18. TRIAMTERENE [Concomitant]
     Route: 065
  19. ZETIA [Concomitant]
     Route: 065
  20. CALCIUM CHLORIDE [Concomitant]

REACTIONS (3)
  - FEBRILE NEUTROPENIA [None]
  - NAUSEA [None]
  - PNEUMONITIS [None]
